FAERS Safety Report 9933591 (Version 1)
Quarter: 2014Q1

REPORT INFORMATION
  Report Type: Report from Study
  Country: US (occurrence: US)
  Receive Date: 20140228
  Receipt Date: 20140228
  Transmission Date: 20141002
  Serious: No
  Sender: FDA-Public Use
  Company Number: US-MYLANLABS-2013S1025698

PATIENT
  Age: 22 Year
  Sex: Female
  Weight: 50 kg

DRUGS (2)
  1. AMNESTEEM CAPSULES [Suspect]
     Indication: ACNE
     Route: 048
     Dates: start: 20130822, end: 20131105
  2. AMNESTEEM CAPSULES [Suspect]
     Indication: ACNE
     Dosage: 40MG BID ON SATURDAY/SUNDAY
     Route: 048
     Dates: start: 20130927, end: 20131025

REACTIONS (4)
  - Drug effect decreased [Not Recovered/Not Resolved]
  - Acne [Not Recovered/Not Resolved]
  - Depressed mood [Not Recovered/Not Resolved]
  - Crying [Not Recovered/Not Resolved]
